FAERS Safety Report 6880606-0 (Version None)
Quarter: 2010Q3

REPORT INFORMATION
  Report Type: 
  Country: None (occurrence: None)
  Receive Date: 20100727
  Receipt Date: 20091119
  Transmission Date: 20110219
  Serious: No
  Sender: FDA-Public Use
  Company Number: A0826942A

PATIENT
  Age: 49 Year
  Sex: Male
  Weight: 87.3 kg

DRUGS (2)
  1. ZANTAC [Suspect]
     Dosage: 150MG AT NIGHT
     Route: 048
     Dates: start: 20090930, end: 20091101
  2. KAPIDEX [Suspect]
     Indication: PRODUCT USED FOR UNKNOWN INDICATION
     Dosage: 60MG PER DAY
     Route: 065

REACTIONS (2)
  - PARAESTHESIA [None]
  - TINNITUS [None]
